FAERS Safety Report 10347477 (Version 2)
Quarter: 2014Q3

REPORT INFORMATION
  Report Type: Spontaneous
  Country: US (occurrence: None)
  Receive Date: 20140725
  Receipt Date: 20140812
  Transmission Date: 20150326
  Serious: Yes (Other)
  Sender: FDA-Public Use
  Company Number: AEGR000484

PATIENT
  Age: 57 Year
  Sex: Male
  Weight: 74.4 kg

DRUGS (1)
  1. JUXTAPID [Suspect]
     Active Substance: LOMITAPIDE MESYLATE
     Indication: TYPE IIA HYPERLIPIDAEMIA
     Route: 048
     Dates: start: 20140430, end: 20140623

REACTIONS (9)
  - Abdominal distension [None]
  - Alanine aminotransferase increased [None]
  - Abdominal pain upper [None]
  - Pneumonia [None]
  - Cough [None]
  - Chromaturia [None]
  - Back pain [None]
  - Hepatic enzyme increased [None]
  - Weight decreased [None]

NARRATIVE: CASE EVENT DATE: 20140513
